FAERS Safety Report 7726824-0 (Version None)
Quarter: 2011Q3

REPORT INFORMATION
  Report Type: 
  Country: None (occurrence: None)
  Receive Date: 20110902
  Receipt Date: 20110830
  Transmission Date: 20111222
  Serious: Yes (Other)
  Sender: FDA-Public Use
  Company Number: FR-GLAXOSMITHKLINE-B0743104A

PATIENT
  Sex: Female

DRUGS (10)
  1. METFORMIN HCL [Concomitant]
  2. NICARDIPINE HCL [Concomitant]
  3. ROSUVASTATINE [Concomitant]
  4. TENORETIC 100 [Concomitant]
  5. PRIMPERAN TAB [Suspect]
     Indication: PREMEDICATION
     Dosage: 1UNIT SINGLE DOSE
     Route: 065
     Dates: start: 20110721, end: 20110721
  6. GLICLAZIDE [Concomitant]
  7. ESOMEPRAZOLE SODIUM [Concomitant]
  8. IRBESARTAN [Concomitant]
  9. ZOFRAN [Suspect]
     Indication: PREMEDICATION
     Dosage: 1UNIT SINGLE DOSE
     Route: 065
     Dates: start: 20110721, end: 20110721
  10. GEMZAR [Suspect]
     Indication: PANCREATIC CARCINOMA
     Dosage: 1930MG SINGLE DOSE
     Route: 042
     Dates: start: 20110721, end: 20110721

REACTIONS (3)
  - ANGIOEDEMA [None]
  - ECZEMA [None]
  - RESPIRATORY DISORDER [None]
